FAERS Safety Report 19326717 (Version 1)
Quarter: 2021Q2

REPORT INFORMATION
  Report Type: Spontaneous
  Country: US (occurrence: US)
  Receive Date: 20210528
  Receipt Date: 20210528
  Transmission Date: 20210717
  Serious: Yes (Other)
  Sender: FDA-Public Use
  Company Number: US-ROCHE-2835592

PATIENT
  Age: 3 Year
  Sex: Male

DRUGS (1)
  1. HEMLIBRA [Suspect]
     Active Substance: EMICIZUMAB-KXWH
     Indication: FACTOR VIII DEFICIENCY
     Route: 058

REACTIONS (4)
  - Contusion [Not Recovered/Not Resolved]
  - Coagulation factor VIII level decreased [Not Recovered/Not Resolved]
  - Haematoma [Unknown]
  - Coagulation time prolonged [Not Recovered/Not Resolved]
